FAERS Safety Report 4922474-X (Version None)
Quarter: 2006Q1

REPORT INFORMATION
  Report Type: 
  Country: None (occurrence: None)
  Receive Date: 20060224
  Receipt Date: 20060202
  Transmission Date: 20060701
  Serious: Yes (Other)
  Sender: FDA-Public Use
  Company Number: 2006AC00221

PATIENT
  Sex: Male
  Weight: 73 kg

DRUGS (4)
  1. CASODEX [Suspect]
     Indication: BENIGN PROSTATIC HYPERPLASIA
     Route: 048
     Dates: start: 20000512, end: 20051127
  2. CASODEX [Suspect]
     Route: 048
     Dates: start: 20051128
  3. TRIAMTERENE AND HYDROCHLOROTHIAZIDE [Concomitant]
     Indication: DIURETIC THERAPY
  4. MOVICOLON [Concomitant]
     Indication: CONSTIPATION
     Dates: start: 20020101

REACTIONS (1)
  - HEART RATE DECREASED [None]
